FAERS Safety Report 21962398 (Version 1)
Quarter: 2023Q1

REPORT INFORMATION
  Report Type: Report from Study
  Country: US (occurrence: US)
  Receive Date: 20230207
  Receipt Date: 20230207
  Transmission Date: 20230418
  Serious: No
  Sender: FDA-Public Use
  Company Number: US-ORG100014127-2022000913

PATIENT
  Age: 49 Year
  Sex: Male

DRUGS (2)
  1. LYSODREN [Suspect]
     Active Substance: MITOTANE
     Indication: Neuroendocrine tumour
     Dosage: 500MG: TAKE 1 TABLET BY MOUTH TWICE DAILY FOR 5 DAY, THEN INCREASED TO 2 TABLETS BY MOUTH DAILY.
     Route: 048
     Dates: start: 20220805
  2. ACETAMINOPHEN\HYDROCODONE [Concomitant]
     Active Substance: ACETAMINOPHEN\HYDROCODONE
     Indication: Product used for unknown indication

REACTIONS (1)
  - Off label use [Unknown]

NARRATIVE: CASE EVENT DATE: 20220815
